FAERS Safety Report 9314198 (Version 1)
Quarter: 2013Q2

REPORT INFORMATION
  Report Type: Spontaneous
  Country: US (occurrence: None)
  Receive Date: 20130524
  Receipt Date: 20130524
  Transmission Date: 20140414
  Serious: Yes (Other)
  Sender: FDA-Public Use
  Company Number: None

PATIENT
  Age: 72 Year
  Sex: Male
  Weight: 78.93 kg

DRUGS (1)
  1. TAMSULOSIN HCL [Suspect]
     Indication: BENIGN PROSTATIC HYPERPLASIA
     Dosage: 0.4 MG DAILY BY MOUTH
     Route: 048
     Dates: start: 20130310, end: 20130314

REACTIONS (5)
  - Local swelling [None]
  - Local swelling [None]
  - Skin swelling [None]
  - Skin fissures [None]
  - Wound secretion [None]
